FAERS Safety Report 4879090-8 (Version None)
Quarter: 2006Q1

REPORT INFORMATION
  Report Type: 
  Country: None (occurrence: None)
  Receive Date: 20060112
  Receipt Date: 20040830
  Transmission Date: 20060701
  Serious: Yes (Hospitalization, Other)
  Sender: FDA-Public Use
  Company Number: PHEH2004US09492

PATIENT
  Age: 47 Year
  Sex: Female

DRUGS (7)
  1. SERZONE [Concomitant]
     Indication: DEPRESSION
     Dosage: 150 MG, QD
     Route: 048
  2. PREVACID [Concomitant]
     Indication: DUODENAL ULCER
     Dosage: UNK, PRN
  3. CELEBREX [Concomitant]
     Dosage: UNK, PRN
  4. ZELNORM [Suspect]
     Indication: IRRITABLE BOWEL SYNDROME
     Dosage: 6 MG, BID
     Dates: start: 20020701, end: 20021201
  5. ZELNORM [Suspect]
     Dosage: 6 MG, BID
     Route: 048
     Dates: start: 20030301, end: 20030701
  6. ZELNORM [Suspect]
     Dosage: 6 MG, BID
     Route: 048
     Dates: start: 20040101
  7. ZELNORM [Suspect]
     Dosage: 6 MG, QD
     Dates: start: 20050101

REACTIONS (9)
  - CHEST PAIN [None]
  - CHOLECYSTECTOMY [None]
  - COLECTOMY TOTAL [None]
  - DIARRHOEA [None]
  - DRUG INEFFECTIVE [None]
  - GALLBLADDER DISORDER [None]
  - GASTROINTESTINAL INFLAMMATION [None]
  - NAUSEA [None]
  - RETCHING [None]
